FAERS Safety Report 23825628 (Version 1)
Quarter: 2024Q2

REPORT INFORMATION
  Report Type: Spontaneous
  Country: EG (occurrence: EG)
  Receive Date: 20240507
  Receipt Date: 20240507
  Transmission Date: 20240716
  Serious: Yes (Hospitalization)
  Sender: FDA-Public Use
  Company Number: EG-PFIZER INC-PV202400058417

PATIENT
  Age: 45 Year
  Sex: Female
  Weight: 110 kg

DRUGS (11)
  1. PACLITAXEL [Suspect]
     Active Substance: PACLITAXEL
     Indication: Breast cancer
     Dosage: UNK, CYCLIC (EVERY 21 DAYS)
     Route: 042
  2. PACLITAXEL [Suspect]
     Active Substance: PACLITAXEL
     Dosage: UNK, CYCLIC (2ND CYCLE)
     Route: 042
  3. PACLITAXEL [Suspect]
     Active Substance: PACLITAXEL
     Dosage: UNK, CYCLIC (3RD CYCLE)
     Route: 042
  4. CARBOPLATIN [Suspect]
     Active Substance: CARBOPLATIN
     Indication: Breast cancer
     Dosage: UNK, CYCLIC (1ST CYCLE)
     Route: 042
  5. CARBOPLATIN [Suspect]
     Active Substance: CARBOPLATIN
     Dosage: 600 MG, CYCLIC (DILUTED IN 500 ML NORMAL SALINE, (EVERY 21 DAYS), 2ND CYCLE)
     Route: 042
     Dates: start: 20240304
  6. CARBOPLATIN [Suspect]
     Active Substance: CARBOPLATIN
     Dosage: 500 MG, CYCLIC (600 MG TO 500 MG)
     Route: 042
  7. CARBOPLATIN [Suspect]
     Active Substance: CARBOPLATIN
     Dosage: UNK, CYCLIC (3RD CYCLE)
     Route: 042
  8. DOCETAXEL [Suspect]
     Active Substance: DOCETAXEL\DOCETAXEL ANHYDROUS
     Indication: Breast cancer
     Dosage: UNK, CYCLIC (1ST CYCLE)
  9. DOCETAXEL [Suspect]
     Active Substance: DOCETAXEL\DOCETAXEL ANHYDROUS
     Dosage: 150 MG, CYCLIC (2ND CYCLE OF EUTAXER 20MG/2ML, DILUTED IN 500 ML NORMAL SALINE OVER 1 HOUR)
     Route: 042
     Dates: start: 20240304
  10. DOCETAXEL [Suspect]
     Active Substance: DOCETAXEL\DOCETAXEL ANHYDROUS
     Dosage: 120 MG, CYCLIC (150 MG TO 120 MG)
     Route: 042
  11. SODIUM CHLORIDE [Concomitant]
     Active Substance: SODIUM CHLORIDE
     Indication: Vehicle solution use
     Dosage: 500 ML

REACTIONS (4)
  - Diarrhoea [Unknown]
  - Tachycardia [Unknown]
  - Electrolyte imbalance [Unknown]
  - Off label use [Unknown]

NARRATIVE: CASE EVENT DATE: 20240304
